FAERS Safety Report 14718707 (Version 2)
Quarter: 2018Q2

REPORT INFORMATION
  Report Type: Report from Study
  Country: EG (occurrence: EG)
  Receive Date: 20180405
  Receipt Date: 20180410
  Transmission Date: 20180711
  Serious: Yes (Hospitalization, Other)
  Sender: FDA-Public Use
  Company Number: EG-ROCHE-2100220

PATIENT
  Age: 55 Year
  Sex: Male

DRUGS (3)
  1. LUCENTIS [Suspect]
     Active Substance: RANIBIZUMAB
     Indication: OPHTHALMIC VEIN THROMBOSIS
     Route: 050
     Dates: start: 20180315
  2. EXFORGE [Suspect]
     Active Substance: AMLODIPINE BESYLATE\VALSARTAN
     Indication: HYPERTENSION
     Dosage: 10 MG OF AMLODIPINE/160 MG OF VALSARTAN
     Route: 065
  3. CONCOR [Concomitant]
     Active Substance: BISOPROLOL FUMARATE
     Indication: HYPERTENSION
     Route: 065

REACTIONS (4)
  - Product use in unapproved indication [Unknown]
  - Hypersensitivity [Recovering/Resolving]
  - Eye haemorrhage [Recovering/Resolving]
  - Lymphadenopathy [Recovering/Resolving]

NARRATIVE: CASE EVENT DATE: 20180315
